FAERS Safety Report 11045175 (Version 1)
Quarter: 2015Q2

REPORT INFORMATION
  Report Type: Spontaneous
  Country: CN (occurrence: CN)
  Receive Date: 20150417
  Receipt Date: 20150417
  Transmission Date: 20150821
  Serious: Yes (Hospitalization)
  Sender: FDA-Public Use
  Company Number: PHHY2015CN043117

PATIENT
  Age: 50 Year
  Sex: Female
  Weight: 45 kg

DRUGS (2)
  1. DUROGESIC [Suspect]
     Active Substance: FENTANYL
     Indication: BONE PAIN
     Dosage: 6.3 MG, Q72H ( (ONE TIME EVERY THREE DAY)(1.5 PATCH)
     Route: 062
     Dates: start: 20141217, end: 20141218
  2. TEGRETOL [Suspect]
     Active Substance: CARBAMAZEPINE
     Indication: BONE PAIN
     Dosage: 0.1 G, TID
     Route: 048
     Dates: start: 20141217, end: 20141218

REACTIONS (4)
  - Constipation [Recovering/Resolving]
  - Somnolence [Recovering/Resolving]
  - Palpitations [Recovering/Resolving]
  - Dizziness [Recovering/Resolving]

NARRATIVE: CASE EVENT DATE: 20141218
